FAERS Safety Report 20693544 (Version 7)
Quarter: 2022Q4

REPORT INFORMATION
  Report Type: Report from Study
  Country: US (occurrence: US)
  Receive Date: 20220411
  Receipt Date: 20221116
  Transmission Date: 20230113
  Serious: Yes (Other)
  Sender: FDA-Public Use
  Company Number: US-NOVARTISTESTPH-NVSC2022US080670

PATIENT
  Sex: Female

DRUGS (4)
  1. ENTRESTO [Suspect]
     Active Substance: SACUBITRIL\VALSARTAN
     Indication: Product used for unknown indication
     Dosage: 1 DOSAGE FORM, BID
     Route: 048
     Dates: start: 202201
  2. CARVEDILOL [Suspect]
     Active Substance: CARVEDILOL
     Indication: Product used for unknown indication
     Dosage: UNK
     Route: 065
  3. XARELTO [Concomitant]
     Active Substance: RIVAROXABAN
     Indication: Product used for unknown indication
     Dosage: UNK
     Route: 065
  4. FARXIGA [Concomitant]
     Active Substance: DAPAGLIFLOZIN PROPANEDIOL
     Indication: Product used for unknown indication
     Dosage: UNK
     Route: 065

REACTIONS (15)
  - Chronic kidney disease [Unknown]
  - Atrial fibrillation [Unknown]
  - Abnormal behaviour [Unknown]
  - Fungal infection [Unknown]
  - Anger [Unknown]
  - Memory impairment [Unknown]
  - Heart rate irregular [Unknown]
  - Temperature intolerance [Unknown]
  - Wheezing [Recovering/Resolving]
  - Ventricular extrasystoles [Unknown]
  - Fall [Unknown]
  - Sleep disorder [Unknown]
  - Depressed mood [Unknown]
  - Depression [Unknown]
  - Asthenia [Unknown]
